FAERS Safety Report 4758023-9 (Version None)
Quarter: 2005Q3

REPORT INFORMATION
  Report Type: 
  Country: None (occurrence: None)
  Receive Date: 20050830
  Receipt Date: 20050815
  Transmission Date: 20060218
  Serious: Yes (Hospitalization)
  Sender: FDA-Public Use
  Company Number: 2005PV001031

PATIENT
  Sex: Male
  Weight: 121.564 kg

DRUGS (4)
  1. BYETTA [Suspect]
     Indication: DIABETES MELLITUS
     Dosage: 5 MCG; BID; SC
     Route: 058
     Dates: start: 20050808, end: 20050811
  2. ACTOS [Concomitant]
  3. GLUCOPHAGE [Concomitant]
  4. HUMULIN N [Concomitant]

REACTIONS (1)
  - PANCREATITIS ACUTE [None]
